FAERS Safety Report 21335436 (Version 2)
Quarter: 2022Q4

REPORT INFORMATION
  Report Type: Spontaneous
  Country: NL (occurrence: NL)
  Receive Date: 20220915
  Receipt Date: 20221001
  Transmission Date: 20230113
  Serious: Yes (Other)
  Sender: FDA-Public Use
  Company Number: None

PATIENT
  Sex: Female
  Weight: 76.5 kg

DRUGS (1)
  1. EZETIMIBE [Suspect]
     Active Substance: EZETIMIBE
     Indication: Low density lipoprotein increased
     Dosage: 1 DOSAGE FORMS DAILY; 1 X DAILY , STRENGTH : 10MG / BRAND NAME NOT SPECIFIED ,  THERAPY END DATE : A
     Dates: start: 20220804

REACTIONS (2)
  - Headache [Recovered/Resolved]
  - Tinnitus [Recovered/Resolved]
